FAERS Safety Report 14840570 (Version 1)
Quarter: 2018Q2

REPORT INFORMATION
  Report Type: Spontaneous
  Country: US (occurrence: US)
  Receive Date: 20180417
  Receipt Date: 20180417
  Transmission Date: 20180711
  Serious: Yes (Disabling)
  Sender: FDA-Public Use
  Company Number: None

PATIENT
  Age: 53 Year
  Sex: Female
  Weight: 76.5 kg

DRUGS (3)
  1. ATENOLOL. [Concomitant]
     Active Substance: ATENOLOL
  2. CIPROFLOXACIN HCL TAB 500 MG [Suspect]
     Active Substance: CIPROFLOXACIN HYDROCHLORIDE
     Indication: URINARY TRACT INFECTION
     Dosage: ?          QUANTITY:1 TABLET(S);?
     Route: 048
  3. DULOXETINE. [Concomitant]
     Active Substance: DULOXETINE

REACTIONS (10)
  - Myalgia [None]
  - Headache [None]
  - Pain of skin [None]
  - Feeling of body temperature change [None]
  - Irritability [None]
  - Nightmare [None]
  - Muscular weakness [None]
  - Neuralgia [None]
  - Diarrhoea [None]
  - Influenza [None]

NARRATIVE: CASE EVENT DATE: 20180410
